FAERS Safety Report 5267192-6 (Version None)
Quarter: 2007Q1

REPORT INFORMATION
  Report Type: 
  Country: None (occurrence: None)
  Receive Date: 20070316
  Receipt Date: 20070312
  Transmission Date: 20070707
  Serious: Yes (Other)
  Sender: FDA-Public Use
  Company Number: HQWYE862215MAR07

PATIENT
  Sex: Female
  Weight: 136.2 kg

DRUGS (2)
  1. ADVIL PM [Suspect]
     Indication: INSOMNIA
     Dosage: 3 CAPLETS DAILY
     Route: 048
     Dates: start: 20050101
  2. ADVIL PM [Suspect]
     Indication: PAIN

REACTIONS (2)
  - DRUG DEPENDENCE [None]
  - OVERDOSE [None]
